FAERS Safety Report 12416477 (Version 3)
Quarter: 2016Q3

REPORT INFORMATION
  Report Type: Spontaneous
  Country: US (occurrence: US)
  Receive Date: 20160530
  Receipt Date: 20160728
  Transmission Date: 20161109
  Serious: Yes (Hospitalization)
  Sender: FDA-Public Use
  Company Number: US-PFIZER INC-2016276677

PATIENT
  Age: 81 Year
  Sex: Female
  Weight: 53 kg

DRUGS (6)
  1. HYDROCORTISONE. [Concomitant]
     Active Substance: HYDROCORTISONE
     Indication: VULVOVAGINAL DISCOMFORT
     Dosage: 2.5 %, 1X/DAY
     Dates: start: 20160512, end: 20160523
  2. CLOBETASOL [Concomitant]
     Active Substance: CLOBETASOL
     Dosage: .05 %, 2X/DAY
     Dates: end: 20160719
  3. PREMARIN [Suspect]
     Active Substance: ESTROGENS, CONJUGATED
     Indication: PRURITUS GENITAL
     Dosage: UNK
  4. FLUOCINONIDE. [Concomitant]
     Active Substance: FLUOCINONIDE
     Dosage: UNK UNK, 2X/DAY
  5. CLOTRIMAZOLE BETAMETHASONE [Concomitant]
     Indication: VULVOVAGINAL DISCOMFORT
     Dosage: 1 DF (1 APPLICATION), DAILY
     Dates: start: 20160512, end: 20160524
  6. PREMARIN [Suspect]
     Active Substance: ESTROGENS, CONJUGATED
     Indication: ATROPHIC VULVOVAGINITIS
     Dosage: 1X/DAY (SHE THINKS SHE WAS USING 0.5 GRAMS OR LESS)
     Route: 067
     Dates: start: 20160523, end: 20160524

REACTIONS (6)
  - Rash erythematous [Recovered/Resolved]
  - Vulvovaginal discomfort [Recovered/Resolved]
  - Condition aggravated [Recovered/Resolved]
  - Rash pruritic [Recovered/Resolved]
  - Rash [Not Recovered/Not Resolved]
  - Rash macular [Recovered/Resolved]

NARRATIVE: CASE EVENT DATE: 201605
